FAERS Safety Report 14511639 (Version 1)
Quarter: 2018Q1

REPORT INFORMATION
  Report Type: Spontaneous
  Country: FR (occurrence: FR)
  Receive Date: 20180209
  Receipt Date: 20180209
  Transmission Date: 20180509
  Serious: Yes (Hospitalization)
  Sender: FDA-Public Use
  Company Number: FR-009507513-1802FRA001845

PATIENT
  Age: 51 Year
  Sex: Male
  Weight: 60 kg

DRUGS (9)
  1. INVANZ [Suspect]
     Active Substance: ERTAPENEM SODIUM
     Indication: ARTHRITIS INFECTIVE
     Route: 042
     Dates: start: 20170901, end: 20170913
  2. ACTISKENAN [Concomitant]
     Active Substance: MORPHINE SULFATE
     Indication: PAIN
     Dosage: AS NECESSARY
     Route: 048
  3. TRANSIPEG [Concomitant]
     Active Substance: POLYETHYLENE GLYCOL 3350
     Indication: CONSTIPATION
     Dosage: AS NECESSARY
     Route: 048
  4. IMOVANE [Concomitant]
     Active Substance: ZOPICLONE
     Indication: INSOMNIA
     Route: 048
  5. GENTAMICIN SULFATE. [Suspect]
     Active Substance: GENTAMICIN SULFATE
     Indication: ARTHRITIS INFECTIVE
     Route: 042
     Dates: start: 20170807, end: 20170812
  6. AMLOR [Concomitant]
     Active Substance: AMLODIPINE BESYLATE
     Indication: HYPERTENSION
     Route: 048
  7. VIREAD [Concomitant]
     Active Substance: TENOFOVIR DISOPROXIL FUMARATE
     Indication: HEPATITIS B VIRUS TEST POSITIVE
     Route: 048
  8. IMIPENEM AND CILASTATIN [Suspect]
     Active Substance: CILASTATIN SODIUM\IMIPENEM
     Route: 042
     Dates: start: 20170807, end: 20170816
  9. SPECIAFOLDINE [Concomitant]
     Active Substance: FOLIC ACID
     Indication: STARVATION
     Route: 048

REACTIONS (3)
  - Confusional state [Unknown]
  - Abnormal behaviour [Recovering/Resolving]
  - Hallucination [Recovering/Resolving]

NARRATIVE: CASE EVENT DATE: 20170816
